FAERS Safety Report 7500701-2 (Version None)
Quarter: 2011Q2

REPORT INFORMATION
  Report Type: 
  Country: None (occurrence: None)
  Receive Date: 20110524
  Receipt Date: 20110513
  Transmission Date: 20111010
  Serious: Yes (Hospitalization)
  Sender: FDA-Public Use
  Company Number: IL-MERCK-0907ISR00009

PATIENT
  Age: 91 Year
  Sex: Female

DRUGS (17)
  1. INVANZ [Suspect]
     Route: 065
     Dates: start: 20090801, end: 20090901
  2. FELODIPINE [Concomitant]
     Route: 065
  3. FERROUS SULFATE AND FOLIC ACID [Concomitant]
     Route: 065
  4. ALFACALCIDOL [Concomitant]
     Route: 065
  5. ACETAMINOPHEN AND CAFFEINE [Concomitant]
     Route: 065
  6. MUPIROCIN [Concomitant]
     Route: 065
  7. INVANZ [Suspect]
     Indication: DEVICE RELATED INFECTION
     Route: 065
     Dates: start: 20090701, end: 20090704
  8. CALCIUM CARBONATE AND CHOLECALCIFEROL [Concomitant]
     Route: 065
  9. INVANZ [Suspect]
     Route: 065
     Dates: start: 20090801, end: 20090901
  10. ATENOLOL [Concomitant]
     Route: 065
  11. HYDROXOCOBALAMIN AND PYRIDOXINE HYDROCHLORIDE AND THIAMINE MONONITRATE [Concomitant]
     Route: 065
  12. BISACODYL [Concomitant]
     Route: 065
  13. INVANZ [Suspect]
     Indication: KIDNEY INFECTION
     Route: 065
     Dates: start: 20090701, end: 20090704
  14. LOSARTAN POTASSIUM [Concomitant]
     Route: 048
  15. ASPIRIN [Concomitant]
     Route: 065
  16. FUROSEMIDE [Concomitant]
     Route: 065
  17. AMITRIPTYLINE HYDROCHLORIDE [Concomitant]
     Route: 065

REACTIONS (20)
  - ASTHENIA [None]
  - ABDOMINAL PAIN UPPER [None]
  - CONFUSIONAL STATE [None]
  - HAEMATOCHEZIA [None]
  - COUGH [None]
  - HALLUCINATION [None]
  - DEPRESSED MOOD [None]
  - CHEST PAIN [None]
  - THROMBOSIS [None]
  - VOMITING [None]
  - CHILLS [None]
  - HAEMATOMA [None]
  - PARAESTHESIA [None]
  - MENTAL IMPAIRMENT [None]
  - DEVICE RELATED SEPSIS [None]
  - CLOSTRIDIUM TEST POSITIVE [None]
  - DIARRHOEA [None]
  - PYREXIA [None]
  - RESTLESSNESS [None]
  - NAUSEA [None]
